FAERS Safety Report 5473813-5 (Version None)
Quarter: 2007Q4

REPORT INFORMATION
  Report Type: 
  Country: None (occurrence: None)
  Receive Date: 20071001
  Receipt Date: 20050531
  Transmission Date: 20080405
  Serious: Yes (Other)
  Sender: FDA-Public Use
  Company Number: US-PFIZER INC-2007062562

PATIENT
  Sex: Female

DRUGS (1)
  1. NEURONTIN [Suspect]
     Indication: DEPRESSION

REACTIONS (4)
  - ABDOMINAL WALL ANOMALY [None]
  - DRUG EXPOSURE DURING PREGNANCY [None]
  - LIMB MALFORMATION [None]
  - MULTIPLE CONGENITAL ABNORMALITIES [None]
